FAERS Safety Report 8261136-0 (Version None)
Quarter: 2012Q2

REPORT INFORMATION
  Report Type: 
  Country: None (occurrence: None)
  Receive Date: 20120405
  Receipt Date: 20120403
  Transmission Date: 20120825
  Serious: Yes (Death, Hospitalization, Other)
  Sender: FDA-Public Use
  Company Number: PHHY2011TH110536

PATIENT
  Sex: Female

DRUGS (1)
  1. GLEEVEC [Suspect]
     Indication: GASTROINTESTINAL STROMAL TUMOUR
     Dosage: 400 MG, UNK
     Route: 048

REACTIONS (7)
  - GENERAL PHYSICAL HEALTH DETERIORATION [None]
  - ARRHYTHMIA [None]
  - RENAL FAILURE ACUTE [None]
  - DEATH [None]
  - DIZZINESS [None]
  - LUNG INFECTION [None]
  - HYPOTENSION [None]
